FAERS Safety Report 24663205 (Version 1)
Quarter: 2024Q4

REPORT INFORMATION
  Report Type: Spontaneous
  Country: US (occurrence: None)
  Receive Date: 20241126
  Receipt Date: 20241126
  Transmission Date: 20250114
  Serious: No
  Sender: AXSOME THERAPEUTICS, INC.
  Company Number: US-Axsome Therapeutics, Inc.-AXS202410-001655

PATIENT
  Age: 36 Year
  Sex: Female

DRUGS (1)
  1. AUVELITY [Suspect]
     Active Substance: BUPROPION HYDROCHLORIDE\DEXTROMETHORPHAN HYDROBROMIDE
     Indication: Product used for unknown indication
     Dosage: 45-105 MG
     Route: 048
     Dates: start: 20240919, end: 20240925

REACTIONS (6)
  - Jaw disorder [Recovered/Resolved]
  - Muscle tightness [Recovered/Resolved]
  - Muscle rigidity [Recovered/Resolved]
  - Off label use [Unknown]
  - Product prescribing error [Unknown]
  - Inappropriate schedule of product administration [Unknown]

NARRATIVE: CASE EVENT DATE: 20240901
